FAERS Safety Report 8653754 (Version 2)
Quarter: 2012Q4

REPORT INFORMATION
  Report Type: 
  Country: US (occurrence: US)
  Receive Date: 20120709
  Receipt Date: 20120914
  Transmission Date: 20130627
  Serious: Yes (Hospitalization)
  Sender: FDA-Public Use
  Company Number: US-US-EMD SERONO, INC.-7129914

PATIENT
  Age: 72 None
  Sex: Male
  Weight: 77 kg

DRUGS (7)
  1. REBIF [Suspect]
     Indication: PROGRESSIVE MULTIPLE SCLEROSIS
     Route: 058
     Dates: start: 20050909
  2. ASPIRIN [Concomitant]
     Indication: PRODUCT USED FOR UNKNOWN INDICATION
  3. MULTIVITAMIN [Concomitant]
     Indication: PRODUCT USED FOR UNKNOWN INDICATION
  4. GABAPENTIN [Concomitant]
     Indication: PRODUCT USED FOR UNKNOWN INDICATION
  5. AMANTADINE [Concomitant]
     Indication: PRODUCT USED FOR UNKNOWN INDICATION
  6. UNSPECIFIED HIGH BLOOD PRESSURE MEDICATION [Concomitant]
     Indication: HYPERTENSION
  7. FINASTERIDE [Concomitant]
     Indication: SUPPLEMENTATION THERAPY

REACTIONS (7)
  - Sepsis [Recovered/Resolved]
  - Clostridium difficile colitis [Recovered/Resolved]
  - Cellulitis [Recovered/Resolved]
  - Sinusitis [Unknown]
  - Dehydration [Unknown]
  - Scar [Unknown]
  - Asthenia [Unknown]
